FAERS Safety Report 4564576-6 (Version None)
Quarter: 2005Q1

REPORT INFORMATION
  Report Type: 
  Country: None (occurrence: None)
  Receive Date: 20050126
  Receipt Date: 20050112
  Transmission Date: 20050727
  Serious: Yes (Disabling)
  Sender: FDA-Public Use
  Company Number: A01200500227

PATIENT
  Age: 86 Year
  Sex: Female

DRUGS (5)
  1. CLOPIDOGREL BISULFATE [Suspect]
     Indication: ATRIAL FIBRILLATION
     Dosage: 75 MG QD ORAL
     Route: 048
     Dates: start: 20040101, end: 20041001
  2. ASPIRIN [Concomitant]
  3. TEMAZEPAM [Concomitant]
  4. PROPRANOLOL HYDROCHLORIDE [Concomitant]
  5. OXYBUTYNIN [Concomitant]

REACTIONS (1)
  - ANAEMIA MEGALOBLASTIC [None]
